FAERS Safety Report 7155888-0 (Version None)
Quarter: 2010Q4

REPORT INFORMATION
  Report Type: 
  Country: None (occurrence: None)
  Receive Date: 20101214
  Receipt Date: 20101206
  Transmission Date: 20110411
  Serious: Yes (Death, Life-Threatening)
  Sender: FDA-Public Use
  Company Number: FR-BRISTOL-MYERS SQUIBB COMPANY-15426687

PATIENT
  Age: 71 Year
  Sex: Female

DRUGS (3)
  1. ORENCIA [Suspect]
     Indication: RHEUMATOID ARTHRITIS
     Dosage: JANUARY 2010 TO MAY-JUNE 2010 DURATION:4MONTHS
     Route: 042
     Dates: start: 20100101, end: 20100101
  2. METHOTREXATE [Suspect]
     Indication: RHEUMATOID ARTHRITIS
     Route: 048
     Dates: start: 20100816
  3. CORTANCYL [Suspect]
     Indication: RHEUMATOID ARTHRITIS
     Dosage: DECREASED AT 12.5 MG/D THEN 10 MG/D INCREASED AT 20 MG/D
     Route: 048
     Dates: start: 20100806

REACTIONS (7)
  - BACTERIAL INFECTION [None]
  - CONFUSIONAL STATE [None]
  - ELECTROENCEPHALOGRAM ABNORMAL [None]
  - HYPERHIDROSIS [None]
  - SEPTIC SHOCK [None]
  - STAPHYLOCOCCUS TEST POSITIVE [None]
  - SUPERINFECTION [None]
